FAERS Safety Report 5016037-8 (Version None)
Quarter: 2006Q2

REPORT INFORMATION
  Report Type: 
  Country: None (occurrence: None)
  Receive Date: 20060531
  Receipt Date: 20060531
  Transmission Date: 20061013
  Serious: Yes (Life-Threatening)
  Sender: FDA-Public Use
  Company Number: None

PATIENT
  Sex: Female
  Weight: 67 kg

DRUGS (10)
  1. FLUDARABINE [Suspect]
     Indication: BONE MARROW CONDITIONING REGIMEN
     Dosage: 45MG  ONCE DAILY IV DRIP
     Route: 041
     Dates: start: 20060419, end: 20060423
  2. BUSULFAN [Suspect]
     Dosage: 244.5MG ONCE DAILY IV DRIP
     Route: 041
     Dates: start: 20060420, end: 20060423
  3. IMIPENEM [Concomitant]
  4. VANCOMYCIN [Concomitant]
  5. CASPOFUNGIN [Concomitant]
  6. FLAGYL [Concomitant]
  7. ACYCLOVIR [Concomitant]
  8. URSODIAL [Concomitant]
  9. PROGRAF [Concomitant]
  10. CAMPATH [Suspect]
     Indication: BONE MARROW CONDITIONING REGIMEN
     Dosage: 20MG ONCE DAILY IV DRIP
     Route: 041
     Dates: start: 20060419, end: 20060423

REACTIONS (1)
  - ILL-DEFINED DISORDER [None]
